FAERS Safety Report 8356955-6 (Version None)
Quarter: 2012Q2

REPORT INFORMATION
  Report Type: 
  Country: None (occurrence: None)
  Receive Date: 20120514
  Receipt Date: 20120508
  Transmission Date: 20120825
  Serious: Yes (Hospitalization)
  Sender: FDA-Public Use
  Company Number: AR-GENZYME-CERZ-1002452

PATIENT
  Age: 60 Year
  Sex: Male

DRUGS (1)
  1. CEREZYME [Suspect]
     Indication: GAUCHER'S DISEASE
     Dosage: UNK
     Route: 042

REACTIONS (4)
  - ASCITES [None]
  - FISTULA [None]
  - PYREXIA [None]
  - GASTROINTESTINAL CARCINOMA [None]
